FAERS Safety Report 25529524 (Version 1)
Quarter: 2025Q3

REPORT INFORMATION
  Report Type: Spontaneous
  Country: US (occurrence: US)
  Receive Date: 20250708
  Receipt Date: 20250708
  Transmission Date: 20251020
  Serious: Yes (Life-Threatening, Hospitalization)
  Sender: FRESENIUS KABI
  Company Number: US-FreseniusKabi-FK202508889

PATIENT
  Age: 68 Year
  Sex: Female
  Weight: 109.4 kg

DRUGS (12)
  1. PACLITAXEL [Suspect]
     Active Substance: PACLITAXEL
     Indication: Ovarian cancer metastatic
     Dosage: INJECTION
     Route: 042
     Dates: start: 20250625, end: 20250625
  2. PACLITAXEL [Suspect]
     Active Substance: PACLITAXEL
     Indication: Fallopian tube cancer
  3. FAMOTIDINE [Suspect]
     Active Substance: FAMOTIDINE
     Indication: Prophylaxis
     Route: 042
     Dates: start: 20250625
  4. FAMOTIDINE [Suspect]
     Active Substance: FAMOTIDINE
     Indication: Hypersensitivity
  5. FOSAPREPITANT [Suspect]
     Active Substance: FOSAPREPITANT
     Indication: Antiemetic supportive care
     Route: 042
     Dates: start: 20250625, end: 20250625
  6. JEMPERLI [Suspect]
     Active Substance: DOSTARLIMAB-GXLY
     Indication: Metastases to ovary
     Route: 042
     Dates: start: 20250625, end: 20250625
  7. JEMPERLI [Suspect]
     Active Substance: DOSTARLIMAB-GXLY
     Indication: Fallopian tube cancer
  8. DIPHENHYDRAMINE [Suspect]
     Active Substance: DIPHENHYDRAMINE
     Indication: Prophylaxis
     Route: 048
     Dates: start: 20250625
  9. DIPHENHYDRAMINE [Suspect]
     Active Substance: DIPHENHYDRAMINE
     Indication: Hypersensitivity
  10. PALONOSETRON [Suspect]
     Active Substance: PALONOSETRON
     Indication: Antiemetic supportive care
     Route: 042
     Dates: start: 20250625
  11. DEXAMETHASONE [Suspect]
     Active Substance: DEXAMETHASONE
     Indication: Prophylaxis
     Route: 042
     Dates: start: 20250625
  12. DEXAMETHASONE [Suspect]
     Active Substance: DEXAMETHASONE
     Indication: Hypersensitivity

REACTIONS (3)
  - Hypersensitivity [Unknown]
  - Cardiac arrest [Unknown]
  - Off label use [Unknown]

NARRATIVE: CASE EVENT DATE: 20250625
